FAERS Safety Report 9929457 (Version 2)
Quarter: 2014Q1

REPORT INFORMATION
  Report Type: Spontaneous
  Country: US (occurrence: US)
  Receive Date: 20140227
  Receipt Date: 20140321
  Transmission Date: 20141002
  Serious: Yes (Life-Threatening)
  Sender: FDA-Public Use
  Company Number: US-GLAXOSMITHKLINE-A1061720A

PATIENT
  Age: 76 Year
  Sex: Male

DRUGS (10)
  1. VOTRIENT [Suspect]
     Indication: RENAL CANCER
     Dosage: 800MG PER DAY
     Route: 048
     Dates: start: 201401, end: 20140212
  2. SYNTHROID [Concomitant]
  3. NORVASC [Concomitant]
  4. ANTIVERT [Concomitant]
  5. TOPROL XL [Concomitant]
  6. LIPITOR [Concomitant]
  7. ZANTAC [Concomitant]
  8. ALLOPURINOL [Concomitant]
  9. TYLENOL [Concomitant]
  10. COLCHICINE [Concomitant]

REACTIONS (3)
  - Malignant neoplasm progression [Not Recovered/Not Resolved]
  - Metastases to lung [Not Recovered/Not Resolved]
  - Hospice care [Not Recovered/Not Resolved]
